FAERS Safety Report 9101418 (Version 2)
Quarter: 2013Q2

REPORT INFORMATION
  Report Type: Report from Study
  Country: BR (occurrence: BR)
  Receive Date: 20130218
  Receipt Date: 20130520
  Transmission Date: 20140414
  Serious: Yes (Hospitalization, Other)
  Sender: FDA-Public Use
  Company Number: BR-ABBOTT-13P-020-1050388-00

PATIENT
  Age: 65 Year
  Sex: Female
  Weight: 58 kg

DRUGS (11)
  1. HUMIRA [Suspect]
     Indication: RHEUMATOID ARTHRITIS
     Route: 058
     Dates: start: 20121201
  2. ACETYLSALICYLIC ACID [Concomitant]
     Indication: CARDIAC DISORDER
     Route: 048
     Dates: start: 201212
  3. CLOPIDOGREL [Concomitant]
     Indication: CARDIAC DISORDER
     Route: 048
     Dates: start: 201212
  4. TORAGESIC [Concomitant]
     Indication: PAIN
     Dosage: 1 OR 2 TABLETS DAILY, WHEN IN PAIN
     Route: 060
  5. TYLEX [Concomitant]
     Indication: PAIN
     Dosage: 1 OR 2 TABLETS DAILY, WHEN IN PAIN
     Route: 048
  6. SINVASTACOR [Concomitant]
     Indication: BLOOD CHOLESTEROL ABNORMAL
     Route: 048
     Dates: start: 201212
  7. CALCIUM [Concomitant]
     Indication: BONE DISORDER
  8. UNKNOWN MEDICATION [Concomitant]
     Indication: BONE DISORDER
     Dosage: POWDER
  9. UNKNOWN MEDICATION [Concomitant]
     Indication: PROPHYLAXIS
  10. UNKNOWN ANALGESIC [Concomitant]
     Indication: ANALGESIC THERAPY
  11. UNKNOWN ANALGESIC [Concomitant]
     Indication: ARTHRALGIA

REACTIONS (7)
  - Cerebral infarction [Recovered/Resolved]
  - Osteoarthritis [Not Recovered/Not Resolved]
  - Pain [Recovering/Resolving]
  - Hand deformity [Not Recovered/Not Resolved]
  - Fatigue [Not Recovered/Not Resolved]
  - Hand deformity [Unknown]
  - Fatigue [Not Recovered/Not Resolved]
